FAERS Safety Report 8721130 (Version 2)
Quarter: 2013Q3

REPORT INFORMATION
  Report Type: Spontaneous
  Country: US (occurrence: US)
  Receive Date: 20120813
  Receipt Date: 20130827
  Transmission Date: 20140515
  Serious: No
  Sender: FDA-Public Use
  Company Number: US-PFIZER INC-2012193724

PATIENT
  Sex: Male

DRUGS (3)
  1. CADUET [Suspect]
     Indication: PULMONARY HYPERTENSION
     Dosage: [AMLODIPINE 10MG]/[ATORVASTATIN 10MG], 1X/DAY
     Route: 048
     Dates: start: 200703, end: 2012
  2. CADUET [Suspect]
     Dosage: [AMLODIPINE 10MG]/[ATORVASTATIN 20MG], 1X/DAY
     Route: 048
     Dates: start: 2012, end: 2012
  3. CADUET [Suspect]
     Dosage: [AMLODIPINE 10MG]/[ATORVASTATIN 40MG], 1X/DAY
     Route: 048
     Dates: start: 2012, end: 2012

REACTIONS (2)
  - Blood pressure increased [Unknown]
  - Headache [Unknown]
